FAERS Safety Report 5753757-1 (Version None)
Quarter: 2008Q2

REPORT INFORMATION
  Report Type: 
  Country: None (occurrence: None)
  Receive Date: 20080530
  Receipt Date: 20080520
  Transmission Date: 20081010
  Serious: Yes (Other)
  Sender: FDA-Public Use
  Company Number: ES-GILEAD-2008-0016141

PATIENT
  Sex: Male
  Weight: 45 kg

DRUGS (3)
  1. VIREAD [Suspect]
     Indication: HIV INFECTION
     Route: 048
     Dates: start: 20061110
  2. ZERIT 20 [Concomitant]
     Indication: HIV INFECTION
     Route: 048
     Dates: start: 20061110
  3. KALETRA MELTREX [Concomitant]
     Indication: HIV INFECTION
     Route: 048
     Dates: start: 20061110

REACTIONS (6)
  - BLOOD ALKALINE PHOSPHATASE INCREASED [None]
  - BLOOD LACTATE DEHYDROGENASE INCREASED [None]
  - BLOOD PHOSPHORUS INCREASED [None]
  - BLOOD SODIUM DECREASED [None]
  - PLATELET COUNT INCREASED [None]
  - RENAL TUBULAR DISORDER [None]
